FAERS Safety Report 5356938-4 (Version None)
Quarter: 2007Q2

REPORT INFORMATION
  Report Type: 
  Country: None (occurrence: None)
  Receive Date: 20070614
  Receipt Date: 20070608
  Transmission Date: 20071010
  Serious: Yes (Life-Threatening, Hospitalization)
  Sender: FDA-Public Use
  Company Number: PHHO2007JP09650

PATIENT
  Age: 101 Year
  Sex: Female

DRUGS (4)
  1. DIOVAN [Suspect]
     Dosage: 80 MG, QD
     Route: 048
     Dates: start: 20030708, end: 20040829
  2. LUPRAC [Concomitant]
     Indication: CARDIAC FAILURE
  3. ASPIRIN [Concomitant]
     Indication: MYOCARDIAL INFARCTION
  4. MARZULENE [Concomitant]
     Indication: GASTRITIS

REACTIONS (3)
  - CEREBRAL INFARCTION [None]
  - SPEECH DISORDER [None]
  - THROMBOTIC STROKE [None]
